FAERS Safety Report 6240385-7 (Version None)
Quarter: 2009Q2

REPORT INFORMATION
  Report Type: 
  Country: None (occurrence: None)
  Receive Date: 20090623
  Receipt Date: 20080718
  Transmission Date: 20091009
  Serious: No
  Sender: FDA-Public Use
  Company Number: US-ASTRAZENECA-2008UW12001

PATIENT
  Age: 67 Year
  Sex: Female
  Weight: 68.3 kg

DRUGS (11)
  1. PULMICORT FLEXHALER [Suspect]
     Indication: ASTHMA
     Dosage: 3 PUFFS, BID
     Route: 055
  2. SEREVENT [Concomitant]
  3. VENTOLIN [Concomitant]
  4. OMEPRAZOLE [Concomitant]
     Route: 048
  5. KLONOPIN [Concomitant]
  6. GENERIC FLONASE [Concomitant]
  7. BONIVA [Concomitant]
  8. CALCIUM [Concomitant]
  9. GLUCOSAMINE [Concomitant]
  10. VITAMIN D [Concomitant]
  11. AMITRIPTYLINE HCL [Concomitant]

REACTIONS (3)
  - COUGH [None]
  - DYSPNOEA [None]
  - MALAISE [None]
